FAERS Safety Report 8423021-0 (Version None)
Quarter: 2012Q2

REPORT INFORMATION
  Report Type: 
  Country: None (occurrence: None)
  Receive Date: 20120608
  Receipt Date: 20120531
  Transmission Date: 20120825
  Serious: Yes (Other)
  Sender: FDA-Public Use
  Company Number: US-JNJFOC-20120600731

PATIENT
  Sex: Female
  Weight: 105.24 kg

DRUGS (6)
  1. OTHER THERAPEUTIC MEDICATIONS [Concomitant]
  2. OXYCODONE HCL [Concomitant]
     Indication: PAIN
     Route: 048
     Dates: start: 20120501
  3. HYDROCHLOROTHIAZDE TAB [Concomitant]
     Indication: BLOOD PRESSURE
     Route: 048
  4. XARELTO [Suspect]
     Indication: HIP ARTHROPLASTY
     Route: 048
     Dates: start: 20120501, end: 20120528
  5. COLACE [Concomitant]
     Indication: ABNORMAL FAECES
     Route: 048
  6. TOPAMAX [Concomitant]
     Indication: MIGRAINE
     Route: 048

REACTIONS (3)
  - DRUG DOSE OMISSION [None]
  - ARTHRALGIA [None]
  - INCISION SITE COMPLICATION [None]
